FAERS Safety Report 10612955 (Version 1)
Quarter: 2014Q4

REPORT INFORMATION
  Report Type: Report from Study
  Country: NL (occurrence: NL)
  Receive Date: 20141127
  Receipt Date: 20141127
  Transmission Date: 20150529
  Serious: Yes (Hospitalization)
  Sender: FDA-Public Use
  Company Number: NL-TEVA-524486ISR

PATIENT
  Age: 73 Year
  Sex: Female

DRUGS (7)
  1. PACLITAXEL. [Suspect]
     Active Substance: PACLITAXEL
     Indication: BREAST CANCER METASTATIC
     Dosage: 110 MILLIGRAM DAILY;
     Route: 042
     Dates: start: 20141002
  2. OMEPRAZOL [Concomitant]
     Active Substance: OMEPRAZOLE
     Dates: start: 20141013
  3. INHIBIN [Concomitant]
  4. BEVACIZUMAB [Suspect]
     Active Substance: BEVACIZUMAB
     Indication: BREAST CANCER METASTATIC
     Dosage: 600 MILLIGRAM DAILY;
     Route: 042
     Dates: start: 20141002
  5. FOSAMAX [Concomitant]
     Active Substance: ALENDRONATE SODIUM
     Dates: start: 20120917
  6. MYOCET [Suspect]
     Active Substance: DOXORUBICIN
     Dosage: 0 MILLIGRAM DAILY;
  7. SIFROL [Concomitant]
     Active Substance: PRAMIPEXOLE

REACTIONS (1)
  - Erysipelas [Recovered/Resolved]

NARRATIVE: CASE EVENT DATE: 20141103
